FAERS Safety Report 9638260 (Version 3)
Quarter: 2013Q4

REPORT INFORMATION
  Report Type: Spontaneous
  Country: US (occurrence: US)
  Receive Date: 20131022
  Receipt Date: 20131213
  Transmission Date: 20140711
  Serious: No
  Sender: FDA-Public Use
  Company Number: US-PFIZER INC-2013301746

PATIENT
  Age: 75 Year
  Sex: Female

DRUGS (10)
  1. CHANTIX [Suspect]
     Indication: SMOKING CESSATION THERAPY
     Dosage: 0.5 MG, DAILY
     Route: 048
     Dates: start: 20131008, end: 2013
  2. XANAX [Concomitant]
     Dosage: 0.25 MG, 3X/DAY
     Route: 048
  3. ZESTRIL [Concomitant]
     Dosage: 10 MG, 2X/DAY (ADVISED TO TAKE 1 TABLET DAILY)
     Route: 048
  4. ADVAIR DISKUS [Concomitant]
     Dosage: 250 MCG-50 MCG/DOSE, INHALE ONE TIME BY MOUTH TWICE PER DAY
     Route: 055
  5. ELOCON [Concomitant]
     Dosage: 0.1 % TOPICAL CREAM, EVERY DAY A THIN LAYER TO THE AFFECTED AREA(S)
     Route: 061
  6. ALBUTEROL SULFATE HFA [Concomitant]
     Dosage: UNK, INHALE 2 PUFF
     Route: 055
  7. VITAMIN B COMPLEX [Concomitant]
     Dosage: 1 DF, 1X/DAY (QD)
     Route: 048
  8. SPIRIVA [Concomitant]
     Dosage: 18 MCG, 1X/DAY (INHALE ONE TIME BY MOUTH DAILY)
     Route: 055
  9. ASPIRIN [Concomitant]
     Dosage: 325 MG, DAILY
     Route: 048
  10. PLAVIX [Concomitant]
     Dosage: 75 MG, DAILY
     Route: 048

REACTIONS (3)
  - Drug ineffective [Unknown]
  - Drug intolerance [Unknown]
  - Nightmare [Recovered/Resolved]
